FAERS Safety Report 6360141-9 (Version None)
Quarter: 2009Q3

REPORT INFORMATION
  Report Type: 
  Country: None (occurrence: None)
  Receive Date: 20090917
  Receipt Date: 20090909
  Transmission Date: 20100115
  Serious: Yes (Death, Hospitalization)
  Sender: FDA-Public Use
  Company Number: US-AVENTIS-200917341US

PATIENT
  Sex: Male
  Weight: 62.2 kg

DRUGS (19)
  1. NILANDRON [Suspect]
     Indication: PROSTATE CANCER METASTATIC
     Dates: start: 20090501, end: 20090601
  2. NILANDRON [Suspect]
     Dates: start: 20090601, end: 20090804
  3. ZOLADEX [Concomitant]
     Route: 058
  4. COREG [Concomitant]
  5. IMDUR [Concomitant]
  6. PRAVASTATIN [Concomitant]
  7. FUROSEMIDE [Concomitant]
     Dosage: DOSE: 40 MG ON TUESDAY, THURSDAY, SATURDAY + SUNDAY
  8. PLAVIX [Concomitant]
     Indication: CORONARY ARTERY DISEASE
  9. ASPIRIN [Concomitant]
  10. REGLAN [Concomitant]
  11. FERROUS SULFATE TAB [Concomitant]
  12. ALLOPURINOL [Concomitant]
     Indication: GOUT
  13. COLCHICINE [Concomitant]
     Indication: GOUT
  14. PROCRIT                            /00909301/ [Concomitant]
     Dosage: DOSE: UNK
     Route: 051
  15. FAMVIR                             /01226201/ [Concomitant]
  16. SILVADENE [Concomitant]
     Dosage: DOSE: UNK
     Route: 061
  17. ZOSTAVAX [Concomitant]
     Dosage: DOSE: UNK
     Dates: start: 20090701
  18. RENAGEL                            /01459902/ [Concomitant]
     Dosage: DOSE: UNK
  19. NEUROTIN                           /00949202/ [Concomitant]
     Indication: HERPES ZOSTER
     Dates: start: 20090804

REACTIONS (6)
  - DYSPNOEA EXERTIONAL [None]
  - INTERSTITIAL LUNG DISEASE [None]
  - NAUSEA [None]
  - PULMONARY CONGESTION [None]
  - RESPIRATORY FAILURE [None]
  - VOMITING [None]
